FAERS Safety Report 7437779-0 (Version None)
Quarter: 2011Q2

REPORT INFORMATION
  Report Type: 
  Country: None (occurrence: None)
  Receive Date: 20110426
  Receipt Date: 20110421
  Transmission Date: 20111010
  Serious: Yes (Hospitalization)
  Sender: FDA-Public Use
  Company Number: A0923974A

PATIENT
  Age: 56 Year
  Sex: Female
  Weight: 86 kg

DRUGS (2)
  1. ALLI [Suspect]
     Indication: WEIGHT LOSS DIET
     Route: 048
     Dates: start: 20080101
  2. LEVOTHYROXINE SODIUM [Concomitant]
     Indication: THYROID DISORDER

REACTIONS (14)
  - PAIN [None]
  - ALANINE AMINOTRANSFERASE INCREASED [None]
  - DEFAECATION URGENCY [None]
  - MALAISE [None]
  - BLOOD ALKALINE PHOSPHATASE INCREASED [None]
  - CHOLECYSTECTOMY [None]
  - LIPASE INCREASED [None]
  - PANCREATITIS ACUTE [None]
  - CHEST PAIN [None]
  - RECTAL DISCHARGE [None]
  - OESOPHAGEAL PAIN [None]
  - ASPARTATE AMINOTRANSFERASE INCREASED [None]
  - PANCREATIC ENZYMES INCREASED [None]
  - SPEECH DISORDER [None]
